FAERS Safety Report 10521943 (Version 1)
Quarter: 2014Q4

REPORT INFORMATION
  Report Type: Spontaneous
  Country: PL (occurrence: None)
  Receive Date: 20141014
  Receipt Date: 20141014
  Transmission Date: 20150528
  Serious: Yes (Other)
  Sender: FDA-Public Use
  Company Number: 20142051

PATIENT
  Sex: Female
  Weight: 85 kg

DRUGS (1)
  1. METHOTREXATE (METHOTREXATE) [Suspect]
     Active Substance: METHOTREXATE
     Indication: RHEUMATOID ARTHRITIS
     Dosage: 1 X 20 MILLIGRAM IN 1 WEEK
     Dates: start: 2009, end: 2009

REACTIONS (2)
  - Liver function test abnormal [None]
  - Pancreatitis acute [None]

NARRATIVE: CASE EVENT DATE: 2009
